FAERS Safety Report 15820767 (Version 2)
Quarter: 2019Q1

REPORT INFORMATION
  Report Type: Spontaneous
  Country: US (occurrence: US)
  Receive Date: 20190114
  Receipt Date: 20190305
  Transmission Date: 20190417
  Serious: No
  Sender: FDA-Public Use
  Company Number: US-SA-2019SA008279

PATIENT
  Sex: Male

DRUGS (3)
  1. OLMESARTAN [Concomitant]
     Active Substance: OLMESARTAN
  2. PRALUENT [Suspect]
     Active Substance: ALIROCUMAB
     Indication: LOW DENSITY LIPOPROTEIN INCREASED
  3. ZETIA [Concomitant]
     Active Substance: EZETIMIBE

REACTIONS (3)
  - Asthenia [Unknown]
  - Feeling abnormal [Unknown]
  - Injection site erythema [Unknown]
